FAERS Safety Report 11092613 (Version 1)
Quarter: 2015Q2

REPORT INFORMATION
  Report Type: Spontaneous
  Country: US (occurrence: None)
  Receive Date: 20150505
  Receipt Date: 20150505
  Transmission Date: 20150821
  Serious: No
  Sender: FDA-Public Use
  Company Number: None

PATIENT
  Age: 58 Year
  Sex: Female
  Weight: 95.26 kg

DRUGS (3)
  1. LEVATHROXIN [Concomitant]
  2. MIRALAX [Suspect]
     Active Substance: POLYETHYLENE GLYCOL 3350
     Indication: COLONOSCOPY
     Dates: start: 20150105
  3. LESINIPRIL [Concomitant]

REACTIONS (13)
  - Blister [None]
  - Eye pruritus [None]
  - Burning sensation [None]
  - Pain [None]
  - Lip swelling [None]
  - Nausea [None]
  - Pyrexia [None]
  - Food allergy [None]
  - Headache [None]
  - Asthenia [None]
  - Pruritus [None]
  - Abdominal discomfort [None]
  - Eye irritation [None]

NARRATIVE: CASE EVENT DATE: 20150105
